FAERS Safety Report 4753935-4 (Version None)
Quarter: 2005Q3

REPORT INFORMATION
  Report Type: 
  Country: None (occurrence: None)
  Receive Date: 20050826
  Receipt Date: 20050506
  Transmission Date: 20060218
  Serious: Yes (Disabling, Other)
  Sender: FDA-Public Use
  Company Number: GBWYE653910MAY05

PATIENT
  Sex: Female

DRUGS (4)
  1. ENBREL [Suspect]
     Indication: JUVENILE ARTHRITIS
     Dosage: UNKNOWN
     Route: 058
     Dates: start: 20001201, end: 20040701
  2. ENBREL [Suspect]
     Route: 058
     Dates: start: 20040301, end: 20040701
  3. HUMIRA [Concomitant]
  4. METHOTREXATE [Concomitant]

REACTIONS (1)
  - IRIDOCYCLITIS [None]
